FAERS Safety Report 5684331-3 (Version None)
Quarter: 2008Q1

REPORT INFORMATION
  Report Type: 
  Country: None (occurrence: None)
  Receive Date: 20080327
  Receipt Date: 20080327
  Transmission Date: 20080703
  Serious: No
  Sender: FDA-Public Use
  Company Number: None

PATIENT
  Age: 27 Year
  Sex: Female
  Weight: 52.1637 kg

DRUGS (1)
  1. AZITHROMYCIN [Suspect]
     Indication: SINUSITIS
     Dosage: 6  DAILY  PO
     Route: 048
     Dates: start: 20080325, end: 20080325

REACTIONS (3)
  - ABDOMINAL PAIN LOWER [None]
  - DIARRHOEA [None]
  - MIDDLE INSOMNIA [None]
